FAERS Safety Report 6094283-2 (Version None)
Quarter: 2009Q1

REPORT INFORMATION
  Report Type: 
  Country: None (occurrence: None)
  Receive Date: 20090226
  Receipt Date: 20090223
  Transmission Date: 20090719
  Serious: Yes (Hospitalization, Other)
  Sender: FDA-Public Use
  Company Number: US-ELI_LILLY_AND_COMPANY-US200902003802

PATIENT
  Sex: Male
  Weight: 92.517 kg

DRUGS (2)
  1. GEMZAR [Suspect]
     Indication: BLADDER TRANSITIONAL CELL CARCINOMA
     Dosage: 800 MG/M2, UNK
     Dates: start: 20081203, end: 20090115
  2. TAXOTERE [Concomitant]
     Indication: BLADDER TRANSITIONAL CELL CARCINOMA
     Dosage: 70 MG/M2, UNK
     Dates: start: 20080901

REACTIONS (2)
  - PNEUMONIA [None]
  - PULMONARY OEDEMA [None]
